FAERS Safety Report 5497758-X (Version None)
Quarter: 2007Q4

REPORT INFORMATION
  Report Type: 
  Country: None (occurrence: None)
  Receive Date: 20071025
  Receipt Date: 20070221
  Transmission Date: 20080405
  Serious: No
  Sender: FDA-Public Use
  Company Number: A0640420A

PATIENT
  Age: 44 Year
  Sex: Male

DRUGS (4)
  1. ADVAIR DISKUS 100/50 [Suspect]
     Indication: RESTRICTIVE PULMONARY DISEASE
     Route: 055
     Dates: start: 20070212
  2. BENADRYL [Concomitant]
  3. KLONOPIN [Concomitant]
  4. M.V.I. [Concomitant]

REACTIONS (6)
  - EXPIRED DRUG ADMINISTERED [None]
  - FEELING JITTERY [None]
  - PALPITATIONS [None]
  - PEAK EXPIRATORY FLOW RATE DECREASED [None]
  - PHARMACEUTICAL PRODUCT COMPLAINT [None]
  - TRACHEAL DISORDER [None]
